FAERS Safety Report 25542215 (Version 2)
Quarter: 2025Q4

REPORT INFORMATION
  Report Type: Spontaneous
  Country: JP (occurrence: JP)
  Receive Date: 20250711
  Receipt Date: 20251103
  Transmission Date: 20260118
  Serious: Yes (Death, Other)
  Sender: BRISTOL-MYERS SQUIBB COMPANY
  Company Number: JP-BRISTOL-MYERS SQUIBB COMPANY-2025-095118

PATIENT
  Age: 83 Year
  Sex: Male
  Weight: 53.6 kg

DRUGS (13)
  1. YERVOY [Suspect]
     Active Substance: IPILIMUMAB
     Indication: Non-small cell lung cancer
     Dosage: ONE TIME DOSE
     Route: 041
     Dates: start: 20250416, end: 20250416
  2. OPDIVO [Suspect]
     Active Substance: NIVOLUMAB
     Indication: Non-small cell lung cancer
     Dosage: ONE TIME DOSE
     Route: 041
     Dates: start: 20250416, end: 20250416
  3. AMITIZA [Concomitant]
     Active Substance: LUBIPROSTONE
     Indication: Product used for unknown indication
     Dosage: 24?G 2 CUPCELS/DAY (SELF?ADJUSTMENT)
  4. ANAMORELIN HYDROCHLORIDE [Concomitant]
     Active Substance: ANAMORELIN HYDROCHLORIDE
     Indication: Product used for unknown indication
     Dosage: 50MG 2 TABLETS/DAY
  5. ACETAMINOPHEN [Concomitant]
     Active Substance: ACETAMINOPHEN
     Indication: Product used for unknown indication
     Dosage: AT 7:55 AM, 500MG 1 TABLET ORALLY?AT 10:01 PM, 500MG 1 TABLET ORALLY
     Route: 048
  6. ACETAMINOPHEN [Concomitant]
     Active Substance: ACETAMINOPHEN
     Dosage: 500MG 3 TABLETS/DAY
     Route: 048
  7. MAGNESIUM OXIDE [Concomitant]
     Active Substance: MAGNESIUM OXIDE
     Indication: Product used for unknown indication
     Dosage: 330MG 3 TABLETS/DAY
  8. SENNOSIDE TOWA [Concomitant]
     Indication: Product used for unknown indication
     Dosage: 12MG 1 TABLET  (WHEN THE PATIENT HAS CONSTIPATION)
  9. ROSUVASTATIN [Concomitant]
     Active Substance: ROSUVASTATIN
     Indication: Product used for unknown indication
     Dosage: 2.5MG 1 TABLET/DAY?EVERY OTHER DAY?
  10. BISOPROLOL FUMARATE [Concomitant]
     Active Substance: BISOPROLOL FUMARATE
     Indication: Product used for unknown indication
     Dosage: 1 TABLET/DAY
  11. ALLOPURINOL [Concomitant]
     Active Substance: ALLOPURINOL
     Indication: Product used for unknown indication
     Dosage: 100MG/DAY
  12. LANSOPRAZOLE [Concomitant]
     Active Substance: LANSOPRAZOLE
     Indication: Product used for unknown indication
     Dosage: 15MG 1 TABLET/DAY
  13. TU-100 [Concomitant]
     Active Substance: ASIAN GINSENG\GINGER\ZANTHOXYLUM PIPERITUM FRUIT PULP
     Indication: Product used for unknown indication
     Dosage: 1 PACK/DAY

REACTIONS (3)
  - Immune-mediated lung disease [Fatal]
  - Cytokine release syndrome [Fatal]
  - Tumour hyperprogression [Fatal]

NARRATIVE: CASE EVENT DATE: 20250416
